FAERS Safety Report 7762085-4 (Version None)
Quarter: 2011Q3

REPORT INFORMATION
  Report Type: 
  Country: None (occurrence: None)
  Receive Date: 20110920
  Receipt Date: 20110920
  Transmission Date: 20111222
  Serious: Yes (Life-Threatening)
  Sender: FDA-Public Use
  Company Number: None

PATIENT
  Age: 52 Year
  Sex: Male
  Weight: 54 kg

DRUGS (1)
  1. VFEND [Suspect]
     Indication: FUNGAL INFECTION
     Dosage: 6 MG/KG
     Route: 042
     Dates: start: 20110901, end: 20110902

REACTIONS (11)
  - ANOXIA [None]
  - VENTRICULAR FIBRILLATION [None]
  - MYOCLONUS [None]
  - CARDIAC ARREST [None]
  - ELECTROCARDIOGRAM QT PROLONGED [None]
  - DYSKINESIA [None]
  - NERVOUS SYSTEM DISORDER [None]
  - INJURY [None]
  - UNRESPONSIVE TO STIMULI [None]
  - BLOOD POTASSIUM DECREASED [None]
  - ALCOHOL WITHDRAWAL SYNDROME [None]
